FAERS Safety Report 9288290 (Version 1)
Quarter: 2013Q2

REPORT INFORMATION
  Report Type: Spontaneous
  Country: US (occurrence: US)
  Receive Date: 20130514
  Receipt Date: 20130514
  Transmission Date: 20140414
  Serious: Yes (Other)
  Sender: FDA-Public Use
  Company Number: PHHY2013US044968

PATIENT
  Sex: Male

DRUGS (2)
  1. CLOZAPINE [Suspect]
     Dosage: UNK
     Route: 064
  2. LITHIUM [Suspect]
     Dosage: UNK
     Route: 064

REACTIONS (15)
  - Cyanosis neonatal [Unknown]
  - Neonatal hypotension [Recovered/Resolved]
  - Hypoperfusion [Recovered/Resolved]
  - Metabolic acidosis [Unknown]
  - Cardiomegaly [Unknown]
  - Right atrial dilatation [Recovering/Resolving]
  - Dilatation ventricular [Recovering/Resolving]
  - Tricuspid valve incompetence [Not Recovered/Not Resolved]
  - Cardiac murmur [Unknown]
  - Atrial septal defect [Unknown]
  - Patent ductus arteriosus [Unknown]
  - Premature baby [Unknown]
  - Pulmonary arterial hypertension [Unknown]
  - Right ventricular systolic pressure increased [Unknown]
  - Foetal exposure during pregnancy [Unknown]
